FAERS Safety Report 9522398 (Version 1)
Quarter: 2013Q1

REPORT INFORMATION
  Report Type: Spontaneous
  Country: US (occurrence: None)
  Receive Date: 20130305
  Receipt Date: 20130305
  Transmission Date: 20140127
  Serious: Yes (Disabling)
  Sender: FDA-Public Use
  Company Number: 163-21880-12063660

PATIENT
  Age: 49 Year
  Sex: Male
  Weight: 92.08 kg

DRUGS (6)
  1. REVLIMID [Suspect]
     Indication: PLASMA CELL MYELOMA
     Dosage: 25 MG, DAILY X21 DAYS, PO
     Route: 048
     Dates: start: 20120525
  2. ALEVE (NAPROXEN SODIUM) [Concomitant]
  3. DEXAMETHASONE (DEXAMETHASONE) [Concomitant]
  4. FENTANYL (FENTANYL) (POULTICE OR PATCH) [Concomitant]
  5. OXYCODONE (OXYCODONE) [Concomitant]
  6. VELCADE (BORTEZOMIB) [Concomitant]

REACTIONS (1)
  - Hypoaesthesia [None]
